FAERS Safety Report 8307995-4 (Version None)
Quarter: 2012Q2

REPORT INFORMATION
  Report Type: 
  Country: None (occurrence: None)
  Receive Date: 20120424
  Receipt Date: 20120416
  Transmission Date: 20120825
  Serious: Yes (Life-Threatening)
  Sender: FDA-Public Use
  Company Number: FR-GLAXOSMITHKLINE-B0795840A

PATIENT
  Sex: Female

DRUGS (7)
  1. DEXAMETHASONE SODIUM PHOSPHATE [Suspect]
     Indication: PREMEDICATION
     Dosage: 20MG CYCLIC
     Route: 042
     Dates: start: 20120216, end: 20120216
  2. ZOFRAN [Suspect]
     Indication: PRODUCT USED FOR UNKNOWN INDICATION
     Dosage: 8MG CYCLIC
     Route: 042
     Dates: start: 20120209, end: 20120209
  3. POLARAMINE [Suspect]
     Indication: PREMEDICATION
     Dosage: 5MG CYCLIC
     Route: 042
     Dates: start: 20120216, end: 20120216
  4. ERBITUX [Suspect]
     Indication: TONSIL CANCER
     Dosage: 250MGM2 CYCLIC
     Route: 042
     Dates: start: 20120216, end: 20120216
  5. ACETAMINOPHEN [Concomitant]
     Route: 065
  6. ZANTAC [Suspect]
     Indication: PREMEDICATION
     Dosage: 50MG CYCLIC
     Route: 042
     Dates: start: 20120216, end: 20120216
  7. CARBOPLATIN [Suspect]
     Indication: TONSIL CANCER
     Route: 042
     Dates: start: 20120209, end: 20120209

REACTIONS (3)
  - GASTRIC ULCER HAEMORRHAGE [None]
  - MELAENA [None]
  - ANAEMIA [None]
